FAERS Safety Report 4521857-X (Version None)
Quarter: 2004Q4

REPORT INFORMATION
  Report Type: 
  Country: None (occurrence: None)
  Receive Date: 20041206
  Receipt Date: 20041123
  Transmission Date: 20050328
  Serious: Yes (Other)
  Sender: FDA-Public Use
  Company Number: 8008123

PATIENT
  Age: 95 Year
  Sex: Female
  Weight: 67.72 kg

DRUGS (8)
  1. KEPPRA [Suspect]
     Indication: MENTAL DISORDER
     Dosage: 250 MG 2/D PO
     Route: 048
     Dates: start: 20041023, end: 20041026
  2. KEPPRA [Suspect]
     Indication: MENTAL DISORDER
     Dosage: 500 MG 2/D PO
     Route: 048
     Dates: start: 20041026, end: 20041103
  3. ATENOLOL [Concomitant]
  4. PROTONIX [Concomitant]
  5. AMLODIPINE [Concomitant]
  6. LISINOPRIL [Concomitant]
  7. FUROSEMIDE [Concomitant]
  8. K-DUR [Concomitant]

REACTIONS (1)
  - THROMBOCYTOPENIA [None]
